FAERS Safety Report 5829414-X (Version None)
Quarter: 2008Q3

REPORT INFORMATION
  Report Type: 
  Country: None (occurrence: None)
  Receive Date: 20080729
  Receipt Date: 20080711
  Transmission Date: 20090109
  Serious: Yes (Hospitalization)
  Sender: FDA-Public Use
  Company Number: 2008AL003165

PATIENT
  Age: 50 Year
  Sex: Female
  Weight: 63.5036 kg

DRUGS (6)
  1. DIGOXIN [Suspect]
     Indication: VENTRICULAR FIBRILLATION
     Dosage: 0.25 MG, DAILY, PO
     Route: 048
     Dates: start: 20030101
  2. POTASSIUM CHLORIDE [Concomitant]
  3. COREG [Concomitant]
  4. ASPIRIN [Concomitant]
  5. DIMUNEX [Concomitant]
  6. BENZAPRIL [Concomitant]

REACTIONS (9)
  - ASTHENIA [None]
  - DIZZINESS [None]
  - DYSPNOEA [None]
  - FATIGUE [None]
  - INFLUENZA LIKE ILLNESS [None]
  - NAUSEA [None]
  - PALPITATIONS [None]
  - STOMACH DISCOMFORT [None]
  - VOMITING [None]
